FAERS Safety Report 26043131 (Version 2)
Quarter: 2025Q4

REPORT INFORMATION
  Report Type: Spontaneous
  Country: GB (occurrence: GB)
  Receive Date: 20251113
  Receipt Date: 20251202
  Transmission Date: 20260119
  Serious: Yes (Other)
  Sender: INSUD PHARMA
  Company Number: GB-MHRA-37568732

PATIENT
  Sex: Female
  Weight: 73 kg

DRUGS (2)
  1. OMEPRAZOLE [Suspect]
     Active Substance: OMEPRAZOLE
     Indication: Dyspepsia
     Dosage: UP TO 40 MG PER DAY
     Route: 065
  2. CALCIUM CARBONATE\SODIUM ALGINATE\SODIUM BICARBONATE [Suspect]
     Active Substance: CALCIUM CARBONATE\SODIUM ALGINATE\SODIUM BICARBONATE
     Indication: Product used for unknown indication
     Dosage: SOMETIMES UP TO 400ML PER DAY
     Route: 065

REACTIONS (4)
  - Maternal exposure during pregnancy [Unknown]
  - Vomiting [Unknown]
  - Insomnia [Unknown]
  - Dyspepsia [Unknown]
